FAERS Safety Report 6449922-0 (Version None)
Quarter: 2009Q4

REPORT INFORMATION
  Report Type: 
  Country: None (occurrence: None)
  Receive Date: 20091123
  Receipt Date: 20091117
  Transmission Date: 20100525
  Serious: Yes (Hospitalization)
  Sender: FDA-Public Use
  Company Number: US-BIOGENIDEC-2009BI034867

PATIENT
  Age: 63 Year
  Sex: Female

DRUGS (12)
  1. TYSABRI [Suspect]
     Indication: MULTIPLE SCLEROSIS
     Route: 042
     Dates: start: 20070214
  2. COUMADIN [Concomitant]
     Route: 048
  3. LISINOPRIL [Concomitant]
  4. BACLOFEN [Concomitant]
     Route: 048
  5. VITAMIN D [Concomitant]
     Route: 048
  6. LEVOTHYROXINE SODIUM [Concomitant]
     Route: 048
  7. AMBIEN [Concomitant]
     Route: 048
  8. PROTONIX [Concomitant]
     Route: 048
  9. RAMIPRIL [Concomitant]
     Route: 048
  10. ARICEPT [Concomitant]
     Route: 048
  11. ZOCOR [Concomitant]
     Route: 048
  12. MAGNESIUM CHLORIDE [Concomitant]
     Route: 048

REACTIONS (9)
  - ARTHRALGIA [None]
  - DIVERTICULITIS [None]
  - GASTRITIS [None]
  - HIATUS HERNIA [None]
  - HYPERGLYCAEMIA [None]
  - HYPOKALAEMIA [None]
  - INTERNATIONAL NORMALISED RATIO DECREASED [None]
  - OESOPHAGITIS [None]
  - WHITE BLOOD CELL COUNT DECREASED [None]
